FAERS Safety Report 23247666 (Version 2)
Quarter: 2023Q4

REPORT INFORMATION
  Report Type: Report from Study
  Country: US (occurrence: US)
  Receive Date: 20231130
  Receipt Date: 20231208
  Transmission Date: 20240110
  Serious: Yes (Hospitalization, Other)
  Sender: FDA-Public Use
  Company Number: US-PFIZER INC-PV202300191346

PATIENT
  Age: 65 Year
  Sex: Male

DRUGS (13)
  1. LEVOFLOXACIN [Interacting]
     Active Substance: LEVOFLOXACIN
     Indication: Diverticulitis
     Dosage: UNK
     Route: 065
  2. METRONIDAZOLE [Interacting]
     Active Substance: METRONIDAZOLE
     Indication: Diverticulitis
     Dosage: UNK
     Route: 065
  3. CABOMETYX [Interacting]
     Active Substance: CABOZANTINIB S-MALATE
     Indication: Renal cell carcinoma
     Dosage: 40 MG, DAILY (40 MG, QD)
     Route: 065
     Dates: start: 20230427, end: 20230914
  4. CABOMETYX [Interacting]
     Active Substance: CABOZANTINIB S-MALATE
     Dosage: 20 MG, DAILY (20 MG, QD)
     Route: 065
     Dates: start: 20231006
  5. CLONIDINE HYDROCHLORIDE [Concomitant]
     Active Substance: CLONIDINE HYDROCHLORIDE
     Dosage: UNK
  6. HYDROCHLOROTHIAZIDE\VALSARTAN [Concomitant]
     Active Substance: HYDROCHLOROTHIAZIDE\VALSARTAN
     Dosage: UNK
  7. WARFARIN SODIUM [Concomitant]
     Active Substance: WARFARIN SODIUM
     Dosage: UNK
  8. ATORVASTATIN CALCIUM [Concomitant]
     Active Substance: ATORVASTATIN CALCIUM
     Dosage: UNK
  9. ACETAMINOPHEN\HYDROCODONE BITARTRATE [Concomitant]
     Active Substance: ACETAMINOPHEN\HYDROCODONE BITARTRATE
     Dosage: UNK
  10. OMEPRAZOLE [Concomitant]
     Active Substance: OMEPRAZOLE
     Dosage: UNK
  11. ONDANSETRON HYDROCHLORIDE [Concomitant]
     Active Substance: ONDANSETRON HYDROCHLORIDE
     Dosage: UNK
  12. DRONABINOL [Concomitant]
     Active Substance: DRONABINOL
     Dosage: UNK
  13. CENTRUM SILVER [ASCORBIC ACID;BETACAROTENE;BIOTIN;CALCIUM PHOSPHATE;CH [Concomitant]
     Dosage: UNK

REACTIONS (14)
  - Diverticulitis [Unknown]
  - Blood zinc decreased [Recovered/Resolved]
  - Hepatic enzyme abnormal [Recovered/Resolved]
  - Blood potassium decreased [Recovered/Resolved]
  - Drug interaction [Unknown]
  - Ageusia [Recovering/Resolving]
  - Blood pressure fluctuation [Recovering/Resolving]
  - Asthenia [Unknown]
  - Neoplasm [Unknown]
  - Decreased appetite [Recovered/Resolved]
  - Weight decreased [Not Recovered/Not Resolved]
  - Pruritus [Recovered/Resolved]
  - Fatigue [Recovered/Resolved]
  - Off label use [Unknown]

NARRATIVE: CASE EVENT DATE: 20230601
